FAERS Safety Report 8412097-2 (Version None)
Quarter: 2012Q2

REPORT INFORMATION
  Report Type: 
  Country: None (occurrence: None)
  Receive Date: 20120605
  Receipt Date: 20120503
  Transmission Date: 20120825
  Serious: No
  Sender: FDA-Public Use
  Company Number: US-AMGEN-USASP2012020047

PATIENT
  Age: 47 Year
  Sex: Female
  Weight: 90.703 kg

DRUGS (3)
  1. ENBREL [Suspect]
     Indication: PSORIATIC ARTHROPATHY
     Dosage: 50 MG, QWK
     Route: 058
     Dates: start: 20120228
  2. METHOTREXATE [Suspect]
     Indication: PSORIATIC ARTHROPATHY
     Dosage: 2.5 MG, QWK
     Route: 058
     Dates: start: 20110618, end: 20120329
  3. ENBREL [Suspect]
     Indication: PSORIASIS

REACTIONS (2)
  - HERPES ZOSTER [None]
  - PSORIATIC ARTHROPATHY [None]
